FAERS Safety Report 25121704 (Version 5)
Quarter: 2025Q2

REPORT INFORMATION
  Report Type: Report from Study
  Country: US (occurrence: US)
  Receive Date: 20250326
  Receipt Date: 20250527
  Transmission Date: 20250717
  Serious: Yes (Congenital Anomaly)
  Sender: GILEAD
  Company Number: US-GILEAD-2025-0707909

PATIENT
  Sex: Male
  Weight: 3.4 kg

DRUGS (7)
  1. BICTEGRAVIR\EMTRICITABINE\TENOFOVIR ALAFENAMIDE [Suspect]
     Active Substance: BICTEGRAVIR\EMTRICITABINE\TENOFOVIR ALAFENAMIDE
     Indication: HIV infection
     Route: 064
  2. OXYCODONE [Concomitant]
     Active Substance: OXYCODONE
     Route: 064
  3. FENTANYL [Concomitant]
     Active Substance: FENTANYL
     Route: 064
  4. COCAINE [Concomitant]
     Active Substance: COCAINE
     Route: 064
  5. METRONIDAZOLE [Concomitant]
     Active Substance: METRONIDAZOLE
     Route: 064
  6. AUGMENTIN [Concomitant]
     Active Substance: AMOXICILLIN\CLAVULANATE POTASSIUM
     Route: 064
  7. VALACYCLOVIR HYDROCHLORIDE [Concomitant]
     Active Substance: VALACYCLOVIR HYDROCHLORIDE
     Route: 064

REACTIONS (3)
  - Foot deformity [Unknown]
  - Dysmorphism [Unknown]
  - Foetal exposure during pregnancy [Recovered/Resolved]
